APPROVED DRUG PRODUCT: MEMANTINE HYDROCHLORIDE
Active Ingredient: MEMANTINE HYDROCHLORIDE
Strength: 10MG
Dosage Form/Route: TABLET;ORAL
Application: A210587 | Product #002 | TE Code: AB
Applicant: PURACAP LABORATORIES LLC DBA BLU PHARMACEUTICALS
Approved: Dec 11, 2020 | RLD: No | RS: No | Type: RX